FAERS Safety Report 5382006-1 (Version None)
Quarter: 2007Q3

REPORT INFORMATION
  Report Type: 
  Country: None (occurrence: None)
  Receive Date: 20070709
  Receipt Date: 20070706
  Transmission Date: 20080115
  Serious: Yes (Hospitalization)
  Sender: FDA-Public Use
  Company Number: B0478074A

PATIENT
  Age: 4 Year

DRUGS (1)
  1. ZOVIRAX [Suspect]
     Indication: VARICELLA
     Route: 048
     Dates: start: 20070625, end: 20070627

REACTIONS (1)
  - DERMATITIS EXFOLIATIVE [None]
